FAERS Safety Report 4533524-7 (Version None)
Quarter: 2004Q4

REPORT INFORMATION
  Report Type: 
  Country: None (occurrence: None)
  Receive Date: 20041221
  Receipt Date: 20041215
  Transmission Date: 20050328
  Serious: Yes (Death)
  Sender: FDA-Public Use
  Company Number: US-JNJFOC-20041100310

PATIENT
  Sex: Male

DRUGS (1)
  1. DURAGESIC [Suspect]
     Route: 062

REACTIONS (2)
  - DEATH [None]
  - LETHARGY [None]
